FAERS Safety Report 4783271-1 (Version None)
Quarter: 2005Q3

REPORT INFORMATION
  Report Type: 
  Country: None (occurrence: None)
  Receive Date: 20050929
  Receipt Date: 20050419
  Transmission Date: 20060218
  Serious: Yes (Hospitalization)
  Sender: FDA-Public Use
  Company Number: US-MERCK-0504USA03724

PATIENT
  Sex: Male

DRUGS (8)
  1. VIOXX [Suspect]
     Route: 048
     Dates: start: 20040416, end: 20040601
  2. ADVICOR [Concomitant]
     Indication: BLOOD CHOLESTEROL INCREASED
     Route: 065
     Dates: start: 20040401, end: 20040901
  3. NIASPAN [Concomitant]
     Route: 065
  4. CYCLOBENZAPRINE HYDROCHLORIDE [Concomitant]
     Route: 065
  5. METOPROLOL [Concomitant]
     Route: 065
  6. TRAMADOL HYDROCHLORIDE [Concomitant]
     Route: 065
  7. WARFARIN SODIUM [Concomitant]
     Route: 065
  8. PLAVIX [Concomitant]
     Route: 065

REACTIONS (6)
  - ATRIAL FIBRILLATION [None]
  - LOW DENSITY LIPOPROTEIN INCREASED [None]
  - LUNG DISORDER [None]
  - MYOCARDIAL INFARCTION [None]
  - PNEUMONIA [None]
  - THROMBOSIS [None]
